FAERS Safety Report 5319086-5 (Version None)
Quarter: 2007Q2

REPORT INFORMATION
  Report Type: 
  Country: None (occurrence: None)
  Receive Date: 20070508
  Receipt Date: 20070427
  Transmission Date: 20071010
  Serious: Yes (Other)
  Sender: FDA-Public Use
  Company Number: GB-ROCHE-495825

PATIENT
  Age: 66 Year
  Sex: Female
  Weight: 76.2 kg

DRUGS (4)
  1. XENICAL [Suspect]
     Indication: OBESITY
     Route: 048
     Dates: start: 20070127
  2. PROZAC [Concomitant]
     Indication: DEPRESSION
     Dates: start: 19970101
  3. SLEEPING TABLET NOS [Concomitant]
     Indication: SOMNOLENCE
  4. UNKNOWN MEDICATION FOR PAIN [Concomitant]

REACTIONS (1)
  - SUICIDAL IDEATION [None]
